FAERS Safety Report 8011044-5 (Version None)
Quarter: 2011Q4

REPORT INFORMATION
  Report Type: 
  Country: None (occurrence: None)
  Receive Date: 20111228
  Receipt Date: 20111221
  Transmission Date: 20120403
  Serious: Yes (Life-Threatening, Congenital Anomaly)
  Sender: FDA-Public Use
  Company Number: US-ELI_LILLY_AND_COMPANY-US201112006057

PATIENT

DRUGS (2)
  1. PROZAC [Suspect]
  2. PROZAC [Suspect]

REACTIONS (2)
  - ATRIOVENTRICULAR SEPTAL DEFECT [None]
  - CARDIAC SEPTAL DEFECT [None]
